FAERS Safety Report 9704529 (Version 2)
Quarter: 2014Q1

REPORT INFORMATION
  Report Type: Spontaneous
  Country: US (occurrence: US)
  Receive Date: 20131122
  Receipt Date: 20140130
  Transmission Date: 20141002
  Serious: No
  Sender: FDA-Public Use
  Company Number: US-009507513-1311USA009677

PATIENT
  Age: 83 Year
  Sex: Female
  Weight: 67.12 kg

DRUGS (1)
  1. OXYTROL FOR WOMEN [Suspect]
     Indication: CYSTITIS
     Dosage: 1 DF, ONCE
     Route: 062
     Dates: start: 20131027, end: 20131030

REACTIONS (3)
  - Application site pruritus [Recovered/Resolved]
  - Application site erythema [Recovered/Resolved]
  - Off label use [Unknown]
